FAERS Safety Report 7281660-7 (Version None)
Quarter: 2011Q1

REPORT INFORMATION
  Report Type: 
  Country: None (occurrence: None)
  Receive Date: 20110127
  Receipt Date: 20110120
  Transmission Date: 20110831
  Serious: Yes (Other)
  Sender: FDA-Public Use
  Company Number: 20109662

PATIENT
  Sex: Female

DRUGS (1)
  1. LIORESAL [Suspect]
     Indication: MUSCLE SPASTICITY
     Dosage: 140 MCG, DAILY, INTRATHECAL
     Route: 037

REACTIONS (5)
  - SECRETION DISCHARGE [None]
  - DEVICE EXTRUSION [None]
  - INCISION SITE PAIN [None]
  - INCISION SITE COMPLICATION [None]
  - INCISION SITE OEDEMA [None]
